FAERS Safety Report 7344828-7 (Version None)
Quarter: 2011Q1

REPORT INFORMATION
  Report Type: 
  Country: None (occurrence: None)
  Receive Date: 20110310
  Receipt Date: 20101027
  Transmission Date: 20110831
  Serious: No
  Sender: FDA-Public Use
  Company Number: US-BAYER-201023266BCC

PATIENT
  Sex: Female
  Weight: 58.957 kg

DRUGS (3)
  1. METHOTREXATE [Concomitant]
  2. ALEVE [Suspect]
     Indication: PRODUCT USED FOR UNKNOWN INDICATION
     Dosage: BOTTLE SIZE NOT REPORTED
  3. ENBREL [Concomitant]

REACTIONS (1)
  - NO ADVERSE EVENT [None]
